FAERS Safety Report 17027838 (Version 1)
Quarter: 2019Q4

REPORT INFORMATION
  Report Type: Spontaneous
  Country: US (occurrence: US)
  Receive Date: 20191113
  Receipt Date: 20191113
  Transmission Date: 20200122
  Serious: No
  Sender: FDA-Public Use
  Company Number: NVSC2019US003392

PATIENT
  Sex: Male

DRUGS (1)
  1. VOTRIENT [Suspect]
     Active Substance: PAZOPANIB HYDROCHLORIDE
     Indication: BONE CANCER
     Dosage: 800 MG, QD (4 TABLET BY MOUTH AT SAME TIME)
     Route: 048

REACTIONS (3)
  - Product dose omission [Unknown]
  - Nausea [Unknown]
  - Product use in unapproved indication [Unknown]
